FAERS Safety Report 9249337 (Version 2)
Quarter: 2013Q3

REPORT INFORMATION
  Report Type: Report from Study
  Country: BR (occurrence: BR)
  Receive Date: 20130423
  Receipt Date: 20130926
  Transmission Date: 20140515
  Serious: Yes (Other)
  Sender: FDA-Public Use
  Company Number: BR-BAYER-2013-050833

PATIENT
  Age: 31 Year
  Sex: Female

DRUGS (2)
  1. BETASERON [Suspect]
     Indication: RELAPSING-REMITTING MULTIPLE SCLEROSIS
     Dosage: 1 ML, QOD
     Route: 058
     Dates: start: 201006, end: 201212
  2. CLONAZEPAM [Concomitant]
     Indication: ANXIETY
     Dosage: 1 DF, QD
     Route: 048
     Dates: start: 2009

REACTIONS (3)
  - Immunodeficiency [Recovered/Resolved]
  - Pharyngitis [Recovering/Resolving]
  - Multiple sclerosis relapse [None]
